FAERS Safety Report 20344260 (Version 1)
Quarter: 2022Q1

REPORT INFORMATION
  Report Type: Spontaneous
  Country: JP (occurrence: JP)
  Receive Date: 20220118
  Receipt Date: 20220118
  Transmission Date: 20220423
  Serious: Yes (Other)
  Sender: FDA-Public Use
  Company Number: JP-TAKEDA-2022TJP006121

PATIENT
  Age: 78 Year
  Sex: Female

DRUGS (1)
  1. ENTYVIO [Suspect]
     Active Substance: VEDOLIZUMAB
     Indication: Crohn^s disease
     Dosage: 300 MILLIGRAM
     Route: 041
     Dates: start: 20210201

REACTIONS (2)
  - Small intestinal obstruction [Unknown]
  - Therapeutic product effect increased [Unknown]

NARRATIVE: CASE EVENT DATE: 20211223
